FAERS Safety Report 24640869 (Version 2)
Quarter: 2024Q4

REPORT INFORMATION
  Report Type: Report from Study
  Country: US (occurrence: US)
  Receive Date: 20241120
  Receipt Date: 20241204
  Transmission Date: 20250115
  Serious: Yes (Other)
  Sender: ABBVIE
  Company Number: US-ABBVIE-5931142

PATIENT
  Sex: Male

DRUGS (2)
  1. HUMIRA [Suspect]
     Active Substance: ADALIMUMAB
     Indication: Psoriasis
     Route: 058
  2. HUMIRA [Suspect]
     Active Substance: ADALIMUMAB
     Dosage: FORM STRENGTH: 40MG
     Route: 058
     Dates: start: 20220214

REACTIONS (5)
  - Intervertebral disc protrusion [Unknown]
  - Muscle spasms [Not Recovered/Not Resolved]
  - Joint range of motion decreased [Unknown]
  - Psoriasis [Recovering/Resolving]
  - Hyperhidrosis [Recovered/Resolved]
